FAERS Safety Report 4429306-7 (Version None)
Quarter: 2004Q3

REPORT INFORMATION
  Report Type: 
  Country: None (occurrence: None)
  Receive Date: 20040819
  Receipt Date: 20040818
  Transmission Date: 20050211
  Serious: Yes (Life-Threatening, Other)
  Sender: FDA-Public Use
  Company Number: PHBS2004GR10828

PATIENT
  Age: 70 Year
  Sex: Female

DRUGS (3)
  1. TRILEPTAL [Suspect]
     Indication: SYNCOPE
     Dosage: 1 DF, QD
     Dates: start: 20040417
  2. TRILEPTAL [Suspect]
     Dosage: 1 DF, BID
     Route: 048
  3. TRILEPTAL [Suspect]
     Dosage: 2 DF, BID
     Route: 048

REACTIONS (3)
  - ISCHAEMIA [None]
  - LEUKOPENIA [None]
  - THROMBOCYTOPENIA [None]
